FAERS Safety Report 24539255 (Version 1)
Quarter: 2024Q4

REPORT INFORMATION
  Report Type: Spontaneous
  Country: IT (occurrence: IT)
  Receive Date: 20241023
  Receipt Date: 20241023
  Transmission Date: 20250115
  Serious: Yes (Other)
  Sender: RANBAXY
  Company Number: IT-SUN PHARMACEUTICAL INDUSTRIES LTD-2024R1-474467

PATIENT
  Age: 25 Year
  Sex: Male

DRUGS (2)
  1. TRIAMCINOLONE [Suspect]
     Active Substance: TRIAMCINOLONE
     Indication: Pain
     Dosage: UNK (40 MG)
     Route: 065
  2. ROPIVACAINE [Concomitant]
     Active Substance: ROPIVACAINE
     Indication: Pain
     Dosage: UNK (40 MG)
     Route: 065

REACTIONS (1)
  - Soft tissue atrophy [Unknown]
